FAERS Safety Report 8861584 (Version 1)
Quarter: 2012Q4

REPORT INFORMATION
  Report Type: 
  Country: US (occurrence: None)
  Receive Date: 20121025
  Receipt Date: 20121025
  Transmission Date: 20130627
  Serious: Yes (Death, Hospitalization)
  Sender: FDA-Public Use
  Company Number: None

PATIENT
  Sex: Male
  Weight: 82.5 kg

DRUGS (1)
  1. PACLITAXEL (TAXOL) [Suspect]
     Dosage: Paclitaxel (Taxol) 324 mg 08/28/2012
     Dates: end: 20120828

REACTIONS (2)
  - Hepatic function abnormal [None]
  - General physical health deterioration [None]
